FAERS Safety Report 20851878 (Version 1)
Quarter: 2022Q2

REPORT INFORMATION
  Report Type: Spontaneous
  Country: US (occurrence: US)
  Receive Date: 20220520
  Receipt Date: 20220520
  Transmission Date: 20220721
  Serious: No
  Sender: FDA-Public Use
  Company Number: US-BRISTOL-MYERS SQUIBB COMPANY-2022-043771

PATIENT
  Age: 82 Year
  Sex: Female

DRUGS (5)
  1. REVLIMID [Suspect]
     Active Substance: LENALIDOMIDE
     Indication: Myelodysplastic syndrome
     Dosage: DAILY AT BEDTIME WITH NO BREAKS
     Route: 048
  2. KLOR-CON 10 MAGNESIUM 27 COQ10 [Concomitant]
     Indication: Product used for unknown indication
  3. XARELTO IRON [Concomitant]
     Indication: Product used for unknown indication
  4. FOLIC ACID TRAMADOL HYDROCHLORIDE [Concomitant]
     Indication: Product used for unknown indication
  5. VITAMIN B12 [Concomitant]
     Active Substance: CYANOCOBALAMIN
     Indication: Product used for unknown indication

REACTIONS (1)
  - Diarrhoea [Unknown]
